FAERS Safety Report 8391990-3 (Version None)
Quarter: 2012Q2

REPORT INFORMATION
  Report Type: 
  Country: None (occurrence: None)
  Receive Date: 20120525
  Receipt Date: 20120525
  Transmission Date: 20120825
  Serious: No
  Sender: FDA-Public Use
  Company Number: None

PATIENT
  Age: 49 Year
  Sex: Female
  Weight: 78.9259 kg

DRUGS (1)
  1. REBIF [Suspect]
     Indication: MULTIPLE SCLEROSIS
     Dosage: 44 MCG 3 X P 1 WEEK SUBQ
     Route: 058
     Dates: start: 20110501, end: 20120101

REACTIONS (3)
  - INFLUENZA LIKE ILLNESS [None]
  - DEPRESSION [None]
  - FATIGUE [None]
